FAERS Safety Report 16361362 (Version 1)
Quarter: 2019Q3

REPORT INFORMATION
  Report Type: Spontaneous
  Country: US (occurrence: US)
  Receive Date: 20190524
  Receipt Date: 20190524
  Transmission Date: 20191004
  Serious: Yes (Life-Threatening, Hospitalization, Disabling, Other)
  Sender: FDA-Public Use
  Company Number: None

PATIENT
  Age: 33 Year
  Sex: Female
  Weight: 56.25 kg

DRUGS (1)
  1. ZYVOX [Suspect]
     Active Substance: LINEZOLID
     Route: 048

REACTIONS (9)
  - Serotonin syndrome [None]
  - Incontinence [None]
  - Aphasia [None]
  - Gait disturbance [None]
  - Muscle injury [None]
  - Brain injury [None]
  - Immobile [None]
  - Amnesia [None]
  - Fall [None]

NARRATIVE: CASE EVENT DATE: 20190326
